FAERS Safety Report 6491700-0 (Version None)
Quarter: 2009Q4

REPORT INFORMATION
  Report Type: 
  Country: None (occurrence: None)
  Receive Date: 20091125
  Receipt Date: 20090514
  Transmission Date: 20100525
  Serious: Yes (Hospitalization, Other)
  Sender: FDA-Public Use
  Company Number: 2009BH008248

PATIENT
  Age: 69 Year
  Sex: Male
  Weight: 97.6 kg

DRUGS (14)
  1. DIANEAL [Suspect]
     Indication: RENAL FAILURE CHRONIC
     Dosage: 10 L ; EVERY DAY ; IP
     Route: 033
     Dates: start: 20080801
  2. PLAVIX [Concomitant]
  3. ATACARD [Concomitant]
  4. MEXILETINE HYDROCHLORIDE [Concomitant]
  5. COREG [Concomitant]
  6. ASPIRIN [Concomitant]
  7. SPIRONOLACTONE [Concomitant]
  8. DIALYVITE [Concomitant]
  9. XOPENEX [Concomitant]
  10. ALBUTEROL [Concomitant]
  11. SULAR [Concomitant]
  12. CRESTOR [Concomitant]
  13. PHOSLO [Concomitant]
  14. CALCITRIOL [Concomitant]

REACTIONS (4)
  - ABDOMINAL DISTENSION [None]
  - DYSPNOEA [None]
  - NAUSEA [None]
  - PERITONITIS BACTERIAL [None]
